FAERS Safety Report 23699717 (Version 3)
Quarter: 2024Q2

REPORT INFORMATION
  Report Type: Spontaneous
  Country: US (occurrence: US)
  Receive Date: 20240403
  Receipt Date: 20240408
  Transmission Date: 20240716
  Serious: Yes (Life-Threatening, Hospitalization, Other)
  Sender: FDA-Public Use
  Company Number: US-BoehringerIngelheim-2024-BI-019501

PATIENT
  Age: 52 Year
  Sex: Female

DRUGS (1)
  1. JARDIANCE [Suspect]
     Active Substance: EMPAGLIFLOZIN
     Indication: Diabetes mellitus
     Dates: start: 20240101, end: 20240213

REACTIONS (10)
  - Cardiac arrest [Recovered/Resolved]
  - Post procedural complication [Recovered/Resolved]
  - Headache [Recovered/Resolved]
  - Swollen tongue [Recovered/Resolved]
  - Throat tightness [Not Recovered/Not Resolved]
  - Perineal abscess [Not Recovered/Not Resolved]
  - Oropharyngeal pain [Recovered/Resolved]
  - Diabetic ketoacidosis [Recovered/Resolved]
  - Respiratory disorder [Unknown]
  - Peripheral swelling [Not Recovered/Not Resolved]

NARRATIVE: CASE EVENT DATE: 20240201
